FAERS Safety Report 6838384-7 (Version None)
Quarter: 2010Q3

REPORT INFORMATION
  Report Type: 
  Country: None (occurrence: None)
  Receive Date: 20100713
  Receipt Date: 20070607
  Transmission Date: 20110219
  Serious: No
  Sender: FDA-Public Use
  Company Number: US-PFIZER INC-2007047757

PATIENT
  Sex: Male
  Weight: 127 kg

DRUGS (1)
  1. CHANTIX [Suspect]
     Indication: SMOKING CESSATION THERAPY
     Dates: start: 20070501, end: 20070607

REACTIONS (10)
  - ACTIVITIES OF DAILY LIVING IMPAIRED [None]
  - APATHY [None]
  - DYSGEUSIA [None]
  - FEELING ABNORMAL [None]
  - HEADACHE [None]
  - INSOMNIA [None]
  - MOOD ALTERED [None]
  - NERVOUSNESS [None]
  - PAIN [None]
  - SOMNOLENCE [None]
